FAERS Safety Report 6130097-2 (Version None)
Quarter: 2009Q1

REPORT INFORMATION
  Report Type: 
  Country: None (occurrence: None)
  Receive Date: 20090324
  Receipt Date: 20090311
  Transmission Date: 20090719
  Serious: Yes (Hospitalization)
  Sender: FDA-Public Use
  Company Number: US-NICOBRDEVP-2009-01705

PATIENT
  Age: 59 Year
  Sex: Female

DRUGS (1)
  1. OXYTROL [Suspect]
     Indication: URINARY INCONTINENCE
     Dosage: APPLY 1 PATCH TWICE WEEKLY
     Route: 062
     Dates: start: 20090201, end: 20090227

REACTIONS (5)
  - DEHYDRATION [None]
  - DIZZINESS [None]
  - DYSPNOEA [None]
  - HYPOTENSION [None]
  - NON-CARDIAC CHEST PAIN [None]
